FAERS Safety Report 21654913 (Version 1)
Quarter: 2022Q4

REPORT INFORMATION
  Report Type: Report from Study
  Country: US (occurrence: US)
  Receive Date: 20221129
  Receipt Date: 20221129
  Transmission Date: 20230112
  Serious: Yes (Hospitalization)
  Sender: FDA-Public Use
  Company Number: US-TEVA-2022-US-2830145

PATIENT
  Age: 18 Year
  Sex: Male
  Weight: 71.5 kg

DRUGS (11)
  1. METHOTREXATE [Suspect]
     Active Substance: METHOTREXATE
     Indication: Philadelphia positive acute lymphocytic leukaemia
     Route: 048
     Dates: start: 20200522, end: 20210522
  2. METHOTREXATE [Suspect]
     Active Substance: METHOTREXATE
     Route: 048
     Dates: start: 20210622
  3. PREDNISONE [Suspect]
     Active Substance: PREDNISONE
     Indication: Philadelphia positive acute lymphocytic leukaemia
     Dosage: 70 MILLIGRAM DAILY; 35 MILLIGRAM, BID X5
     Route: 048
     Dates: start: 20200522
  4. VINCRISTINE [Suspect]
     Active Substance: VINCRISTINE
     Indication: Philadelphia positive acute lymphocytic leukaemia
     Route: 042
     Dates: start: 20200522
  5. RUXOLITINIB [Suspect]
     Active Substance: RUXOLITINIB
     Indication: Philadelphia positive acute lymphocytic leukaemia
     Dosage: 170 MILLIGRAM DAILY; 14 DAYS ON/ 14 DAYS OFF
     Route: 048
     Dates: start: 20200522
  6. MERCAPTOPURINE [Suspect]
     Active Substance: MERCAPTOPURINE
     Indication: Philadelphia positive acute lymphocytic leukaemia
     Dosage: 125 MILLIGRAM DAILY; 125 MG QD/X5 AND 150MG QD/X2; ORAL USE
     Route: 048
     Dates: start: 20200522, end: 20210522
  7. MERCAPTOPURINE [Suspect]
     Active Substance: MERCAPTOPURINE
     Dosage: 150 MILLIGRAM DAILY; 125 MG QD/X5 AND 150MG QD/X2; ORAL USE
     Route: 048
     Dates: start: 20210622
  8. SULFAMETHOXAZOLE\TRIMETHOPRIM [Concomitant]
     Active Substance: SULFAMETHOXAZOLE\TRIMETHOPRIM
     Indication: Product used for unknown indication
     Route: 065
     Dates: start: 201707, end: 20200929
  9. DAPSONE [Concomitant]
     Active Substance: DAPSONE
     Indication: Product used for unknown indication
     Route: 065
     Dates: start: 20200929, end: 20201013
  10. ATOVAQUONE [Concomitant]
     Active Substance: ATOVAQUONE
     Indication: Product used for unknown indication
     Route: 065
     Dates: start: 20201013
  11. VALACYCLOVIR [Concomitant]
     Active Substance: VALACYCLOVIR HYDROCHLORIDE
     Indication: Product used for unknown indication
     Route: 065
     Dates: start: 20200528

REACTIONS (6)
  - Acute respiratory distress syndrome [Recovered/Resolved]
  - Pneumocystis jirovecii pneumonia [Recovered/Resolved]
  - Pyrexia [Recovered/Resolved]
  - Sepsis [Recovered/Resolved]
  - Haemoglobin decreased [Recovered/Resolved]
  - Chills [Recovered/Resolved]

NARRATIVE: CASE EVENT DATE: 20210604
